FAERS Safety Report 8933152 (Version 1)
Quarter: 2012Q4

REPORT INFORMATION
  Report Type: 
  Country: US (occurrence: US)
  Receive Date: 20121128
  Receipt Date: 20121128
  Transmission Date: 20130627
  Serious: Yes (Other)
  Sender: FDA-Public Use
  Company Number: US-VERTEX PHARMACEUTICAL INC.-2012-025211

PATIENT
  Sex: Female
  Weight: 56 kg

DRUGS (11)
  1. VX-950 (TELAPREVIR) [Suspect]
     Indication: HEPATITIS C
     Dosage: 750 mg, tid
     Route: 048
  2. PEGASYS [Concomitant]
     Indication: HEPATITIS C
     Dosage: 180 ?g, UNK
  3. RIBAVIRIN [Concomitant]
     Indication: HEPATITIS C
     Dosage: 200 mg, UNK
  4. XANAX [Concomitant]
     Dosage: 1 mg, UNK
  5. BENADRYL                           /00000402/ [Concomitant]
     Dosage: 25 mg, UNK
  6. VICODIN [Concomitant]
     Dosage: 5-500 mg, UNK
  7. SARNA SENSITIVE [Concomitant]
     Dosage: UNK
  8. ZOFRAN                             /00955301/ [Concomitant]
     Dosage: 4 mg, UNK
  9. IBUPROFEN [Concomitant]
     Dosage: 200 mg, UNK
  10. FENTANYL [Concomitant]
     Dosage: 12 ?g/ hr
  11. HYDROCORTISON                      /00028601/ [Concomitant]

REACTIONS (6)
  - Suicidal ideation [Unknown]
  - Vertigo [Unknown]
  - Weight decreased [Unknown]
  - Motion sickness [Unknown]
  - Nausea [Unknown]
  - Vomiting [Unknown]
